FAERS Safety Report 19402371 (Version 1)
Quarter: 2021Q2

REPORT INFORMATION
  Report Type: Spontaneous
  Country: US (occurrence: US)
  Receive Date: 20210610
  Receipt Date: 20210610
  Transmission Date: 20210717
  Serious: Yes (Disabling, Other)
  Sender: FDA-Public Use
  Company Number: US-REGENERON PHARMACEUTICALS, INC.-2021-56251

PATIENT

DRUGS (2)
  1. EYLEA [Suspect]
     Active Substance: AFLIBERCEPT
     Indication: RETINAL VEIN OCCLUSION
     Dosage: 1ST INJECTION, OD
     Dates: start: 20210429, end: 20210429
  2. EYLEA [Suspect]
     Active Substance: AFLIBERCEPT
     Dosage: 2ND INJECTION, OD
     Dates: start: 20210527, end: 20210527

REACTIONS (3)
  - Eye pain [Unknown]
  - Blindness unilateral [Unknown]
  - Retinal artery occlusion [Unknown]

NARRATIVE: CASE EVENT DATE: 20210528
